FAERS Safety Report 8523777-2 (Version None)
Quarter: 2012Q3

REPORT INFORMATION
  Report Type: 
  Country: None (occurrence: None)
  Receive Date: 20120720
  Receipt Date: 20120716
  Transmission Date: 20120928
  Serious: Yes (Hospitalization)
  Sender: FDA-Public Use
  Company Number: GB-ASTELLAS-2012EU005121

PATIENT
  Age: 77 Year
  Sex: Male

DRUGS (1)
  1. VESICARE [Suspect]
     Dosage: UNK
     Route: 065

REACTIONS (2)
  - URINARY TRACT INFECTION [None]
  - HAEMATURIA [None]
